FAERS Safety Report 22638332 (Version 1)
Quarter: 2023Q2

REPORT INFORMATION
  Report Type: Spontaneous
  Country: US (occurrence: US)
  Receive Date: 20230626
  Receipt Date: 20230626
  Transmission Date: 20230721
  Serious: Yes (Death, Life-Threatening, Other)
  Sender: FDA-Public Use
  Company Number: US-BoehringerIngelheim-2023-BI-245541

PATIENT
  Age: 68 Year
  Sex: Female

DRUGS (9)
  1. AFATINIB [Suspect]
     Active Substance: AFATINIB
     Indication: HER2 mutant non-small cell lung cancer
  2. OSIMERTINIB [Suspect]
     Active Substance: OSIMERTINIB
     Indication: HER2 mutant non-small cell lung cancer
  3. OSIMERTINIB [Suspect]
     Active Substance: OSIMERTINIB
  4. OSIMERTINIB [Suspect]
     Active Substance: OSIMERTINIB
     Dosage: 160/80 MG ALTERNATING DAYS
  5. DOXYCYCLINE [Suspect]
     Active Substance: DOXYCYCLINE
     Indication: Product used for unknown indication
  6. CARBOPLATIN [Concomitant]
     Active Substance: CARBOPLATIN
     Indication: HER2 mutant non-small cell lung cancer
  7. PACLITAXEL [Concomitant]
     Active Substance: PACLITAXEL
     Indication: HER2 mutant non-small cell lung cancer
  8. PEMETREXED [Concomitant]
     Active Substance: PEMETREXED
     Indication: HER2 mutant non-small cell lung cancer
  9. PEMBROLIZUMAB [Concomitant]
     Active Substance: PEMBROLIZUMAB
     Indication: Metastases to central nervous system

REACTIONS (5)
  - Metastases to central nervous system [Fatal]
  - Diarrhoea [Unknown]
  - Non-small cell lung cancer [Recovered/Resolved]
  - Fatigue [Recovered/Resolved]
  - Hypertransaminasaemia [Recovered/Resolved]
